FAERS Safety Report 20162917 (Version 1)
Quarter: 2021Q4

REPORT INFORMATION
  Report Type: Spontaneous
  Country: US (occurrence: None)
  Receive Date: 20211209
  Receipt Date: 20211209
  Transmission Date: 20220303
  Serious: Yes (Other)
  Sender: FDA-Public Use
  Company Number: US-ROCHE-2970960

PATIENT
  Sex: Female

DRUGS (1)
  1. OCREVUS [Suspect]
     Active Substance: OCRELIZUMAB
     Indication: Multiple sclerosis
     Dosage: INFUSE 600 MGIN 500 ML 0.9% NS INTRAVENOUSLY AT 40ML/HR AND INCREASE BY 40 ML/HR EVERY 30 MINUTES (M
     Route: 042
     Dates: start: 20211005

REACTIONS (1)
  - Multiple sclerosis relapse [Unknown]
